FAERS Safety Report 13076769 (Version 1)
Quarter: 2016Q4

REPORT INFORMATION
  Report Type: Spontaneous
  Country: JP (occurrence: JP)
  Receive Date: 20161230
  Receipt Date: 20161230
  Transmission Date: 20170207
  Serious: Yes (Life-Threatening, Hospitalization, Other)
  Sender: FDA-Public Use
  Company Number: JP-ALLERGAN-1680117US

PATIENT
  Age: 16 Year
  Sex: Female

DRUGS (1)
  1. ESCITALOPRAM OXALATE - BP [Suspect]
     Active Substance: ESCITALOPRAM OXALATE
     Indication: DEPRESSION
     Dosage: 10 MG, QD
     Route: 048
     Dates: start: 20161006, end: 20161013

REACTIONS (3)
  - Intentional self-injury [Unknown]
  - Suicidal behaviour [Unknown]
  - Activation syndrome [Recovered/Resolved]

NARRATIVE: CASE EVENT DATE: 20161010
